FAERS Safety Report 14906280 (Version 1)
Quarter: 2018Q2

REPORT INFORMATION
  Report Type: Spontaneous
  Country: US (occurrence: US)
  Receive Date: 20180517
  Receipt Date: 20180517
  Transmission Date: 20180711
  Serious: No
  Sender: FDA-Public Use
  Company Number: US-SA-2018SA083154

PATIENT
  Age: 68 Year
  Sex: Female
  Weight: 57.6 kg

DRUGS (6)
  1. LANTUS SOLOSTAR [Suspect]
     Active Substance: INSULIN GLARGINE
     Indication: TYPE 1 DIABETES MELLITUS
     Dosage: DOSE:21 UNIT(S)
     Route: 051
  2. HUMALOG [Concomitant]
     Active Substance: INSULIN LISPRO
     Route: 065
  3. SOLOSTAR [Concomitant]
     Active Substance: DEVICE
     Route: 065
  4. SOLOSTAR [Suspect]
     Active Substance: DEVICE
     Indication: TYPE 1 DIABETES MELLITUS
     Dates: start: 2009
  5. TOUJEO [Concomitant]
     Active Substance: INSULIN GLARGINE
     Route: 065
  6. LANTUS SOLOSTAR [Suspect]
     Active Substance: INSULIN GLARGINE
     Indication: TYPE 1 DIABETES MELLITUS
     Dosage: DOSE:19 UNIT(S)
     Route: 051
     Dates: start: 2009

REACTIONS (4)
  - Product use issue [Unknown]
  - Hypoglycaemia [Unknown]
  - Device use issue [Unknown]
  - Injection site extravasation [Unknown]
